FAERS Safety Report 7148338-1 (Version None)
Quarter: 2010Q4

REPORT INFORMATION
  Report Type: 
  Country: None (occurrence: None)
  Receive Date: 20101209
  Receipt Date: 20101201
  Transmission Date: 20110411
  Serious: Yes (Death)
  Sender: FDA-Public Use
  Company Number: CH-NOVOPROD-318770

PATIENT
  Age: 30 Year
  Sex: Female

DRUGS (4)
  1. NOVOSEVEN RT [Suspect]
     Indication: HAEMORRHAGE
     Dosage: 45 UG/KG, UNK
  2. NOVOSEVEN RT [Suspect]
     Dosage: 90 UG/KG, UNK
  3. ORAL CONTRACEPTIVE NOS [Concomitant]
  4. ACTIVASE [Concomitant]
     Indication: PULMONARY EMBOLISM
     Dosage: UNK

REACTIONS (1)
  - DRUG INEFFECTIVE [None]
